FAERS Safety Report 5004466-8 (Version None)
Quarter: 2006Q2

REPORT INFORMATION
  Report Type: 
  Country: None (occurrence: None)
  Receive Date: 20060511
  Receipt Date: 20060427
  Transmission Date: 20061013
  Serious: Yes (Hospitalization)
  Sender: FDA-Public Use
  Company Number: A-US2006-12175

PATIENT
  Age: 63 Year
  Sex: Female
  Weight: 54 kg

DRUGS (11)
  1. TRACLEER [Suspect]
     Indication: PULMONARY HYPERTENSION
     Dosage: 125; 62.5 MG, BID, ORAL
     Route: 048
     Dates: start: 20051128, end: 20060423
  2. NEURONTIN [Concomitant]
  3. ADVAIR DISKUS 100/50 [Concomitant]
  4. SPIRIVA [Concomitant]
  5. ENALAPRIL MALEATE [Concomitant]
  6. AMITRIPTYLINE HCL [Concomitant]
  7. PREDNISONE TAB [Concomitant]
  8. ACETAMINOPHEN [Concomitant]
  9. NYSTATIN [Concomitant]
  10. LASIX [Concomitant]
  11. MAGIC MOUTHWASH [Concomitant]

REACTIONS (9)
  - BLOOD CHLORIDE INCREASED [None]
  - BLOOD CREATININE INCREASED [None]
  - BLOOD GLUCOSE INCREASED [None]
  - BLOOD UREA DECREASED [None]
  - DEPRESSED LEVEL OF CONSCIOUSNESS [None]
  - HEPATIC FAILURE [None]
  - HYPOGLYCAEMIA [None]
  - MENTAL STATUS CHANGES [None]
  - PCO2 DECREASED [None]
